FAERS Safety Report 24838518 (Version 3)
Quarter: 2025Q2

REPORT INFORMATION
  Report Type: Report from Study
  Country: US (occurrence: US)
  Receive Date: 20250113
  Receipt Date: 20250407
  Transmission Date: 20250717
  Serious: Yes (Other)
  Sender: ALNYLAM PHARMACEUTICALS
  Company Number: US-ALNYLAM PHARMACEUTICALS, INC.-ALN-2025-000153

PATIENT

DRUGS (2)
  1. GIVLAARI [Suspect]
     Active Substance: GIVOSIRAN SODIUM
     Indication: Porphyria acute
     Dosage: 353.6 MILLIGRAM (189 MILLIGRAMS PER MILLILITER VIALS), MONTHLY
     Route: 058
     Dates: start: 20231106, end: 20231106
  2. PANHEMATIN [Concomitant]
     Active Substance: HEMIN
     Indication: Product used for unknown indication
     Dosage: UNK, MONTHLY
     Route: 065

REACTIONS (11)
  - Seizure [Unknown]
  - Hallucination [Not Recovered/Not Resolved]
  - Balance disorder [Unknown]
  - Blood pressure orthostatic decreased [Unknown]
  - Nystagmus [Unknown]
  - Inner ear disorder [Unknown]
  - Rales [Unknown]
  - Productive cough [Unknown]
  - Dizziness [Unknown]
  - Vomiting [Unknown]
  - Disorientation [Unknown]

NARRATIVE: CASE EVENT DATE: 20250328
